FAERS Safety Report 25990167 (Version 1)
Quarter: 2025Q4

REPORT INFORMATION
  Report Type: Spontaneous
  Country: EU (occurrence: EU)
  Receive Date: 20251103
  Receipt Date: 20251103
  Transmission Date: 20260117
  Serious: Yes (Other)
  Sender: ELI LILLY AND COMPANY
  Company Number: None

PATIENT
  Age: 54 Year
  Sex: Male

DRUGS (2)
  1. MOUNJARO [Interacting]
     Active Substance: TIRZEPATIDE
     Indication: Product used for unknown indication
     Dosage: UNK, UNKNOWN
     Route: 065
     Dates: start: 20250901, end: 20251014
  2. SINTROM [Interacting]
     Active Substance: ACENOCOUMAROL
     Indication: Product used for unknown indication
     Dosage: 20 MG, BID (2/24H)
     Route: 065
     Dates: start: 20110727

REACTIONS (3)
  - International normalised ratio decreased [Unknown]
  - Gastrointestinal disorder [Unknown]
  - Drug interaction [Unknown]

NARRATIVE: CASE EVENT DATE: 20250901
